FAERS Safety Report 5750286-6 (Version None)
Quarter: 2008Q2

REPORT INFORMATION
  Report Type: 
  Country: None (occurrence: None)
  Receive Date: 20080522
  Receipt Date: 20080522
  Transmission Date: 20081010
  Serious: Yes (Other)
  Sender: FDA-Public Use
  Company Number: None

PATIENT
  Age: 77 Year
  Sex: Male
  Weight: 79.3795 kg

DRUGS (1)
  1. DIGITEK 0.25 0.25 ACTAVIS-TOTOWA [Suspect]
     Indication: CARDIAC OPERATION
     Dosage: 1 PILL ONCE OF DAY PO
     Route: 048
     Dates: start: 19950301, end: 20080521

REACTIONS (2)
  - BLOOD PRESSURE INCREASED [None]
  - CARDIAC STRESS TEST ABNORMAL [None]
